FAERS Safety Report 12383914 (Version 1)
Quarter: 2016Q2

REPORT INFORMATION
  Report Type: Spontaneous
  Country: US (occurrence: US)
  Receive Date: 20160519
  Receipt Date: 20160519
  Transmission Date: 20160815
  Serious: No
  Sender: FDA-Public Use
  Company Number: US-LUPIN PHARMACEUTICALS INC.-2016-01128

PATIENT
  Sex: 0

DRUGS (1)
  1. CELECOXIB CAPSULES 200 MG [Suspect]
     Active Substance: CELECOXIB
     Indication: BACK PAIN
     Route: 065

REACTIONS (1)
  - Drug ineffective [Unknown]
